FAERS Safety Report 22037773 (Version 1)
Quarter: 2023Q1

REPORT INFORMATION
  Report Type: Spontaneous
  Country: US (occurrence: US)
  Receive Date: 20230227
  Receipt Date: 20230227
  Transmission Date: 20230417
  Serious: No
  Sender: FDA-Public Use
  Company Number: US-SA-SAC20230222001405

PATIENT
  Sex: Female

DRUGS (3)
  1. DUPIXENT [Suspect]
     Active Substance: DUPILUMAB
     Indication: Dermatitis atopic
  2. PROTOPIC [Concomitant]
     Active Substance: TACROLIMUS
     Route: 061
  3. EUCRISA [Concomitant]
     Active Substance: CRISABOROLE
     Route: 061

REACTIONS (1)
  - Treatment failure [Unknown]
